FAERS Safety Report 4564222-1 (Version None)
Quarter: 2005Q1

REPORT INFORMATION
  Report Type: 
  Country: None (occurrence: None)
  Receive Date: 20050128
  Receipt Date: 20041230
  Transmission Date: 20050727
  Serious: Yes (Hospitalization)
  Sender: FDA-Public Use
  Company Number: US-ROCHE-391291

PATIENT
  Age: 69 Year
  Sex: Female

DRUGS (5)
  1. VALIUM [Suspect]
     Indication: DRUG USE FOR UNKNOWN INDICATION
     Route: 048
  2. PAIN MEDICATION NOS [Suspect]
     Indication: PAIN
     Dosage: GENERIC: ZICONOTIDE
     Route: 037
  3. NORCO [Suspect]
     Indication: DRUG USE FOR UNKNOWN INDICATION
     Route: 065
  4. LEXAPRO [Suspect]
     Indication: DRUG USE FOR UNKNOWN INDICATION
     Route: 065
  5. AVINZA [Suspect]
     Indication: DRUG USE FOR UNKNOWN INDICATION
     Route: 065

REACTIONS (2)
  - CHEST DISCOMFORT [None]
  - DRUG WITHDRAWAL SYNDROME [None]
